FAERS Safety Report 4322288-8 (Version None)
Quarter: 2004Q1

REPORT INFORMATION
  Report Type: 
  Country: None (occurrence: None)
  Receive Date: 20040319
  Receipt Date: 20040308
  Transmission Date: 20041129
  Serious: Yes (Death)
  Sender: FDA-Public Use
  Company Number: US-JNJFOC-20040302159

PATIENT
  Sex: Female

DRUGS (1)
  1. REMICADE [Suspect]
     Indication: RHEUMATOID ARTHRITIS
     Dates: start: 20021218, end: 20021218

REACTIONS (4)
  - DIARRHOEA [None]
  - GASTROINTESTINAL DISORDER [None]
  - INTERSTITIAL LUNG DISEASE [None]
  - WEIGHT DECREASED [None]
